FAERS Safety Report 16469510 (Version 2)
Quarter: 2019Q3

REPORT INFORMATION
  Report Type: Spontaneous
  Country: US (occurrence: US)
  Receive Date: 20190624
  Receipt Date: 20190717
  Transmission Date: 20191004
  Serious: No
  Sender: FDA-Public Use
  Company Number: US-SA-2019SA165694

PATIENT
  Age: 55 Year
  Sex: Male

DRUGS (9)
  1. LORATADINE. [Concomitant]
     Active Substance: LORATADINE
  2. DUPIXENT [Suspect]
     Active Substance: DUPILUMAB
     Dosage: 300 MG, QOW
     Route: 058
     Dates: start: 2019
  3. ZYRTEC [Concomitant]
     Active Substance: CETIRIZINE HYDROCHLORIDE
  4. VITAMIN C [Concomitant]
     Active Substance: ASCORBIC ACID
  5. DUPIXENT [Suspect]
     Active Substance: DUPILUMAB
     Indication: DERMATITIS ATOPIC
     Dosage: 600 MG, 1X
     Route: 058
     Dates: start: 20190516, end: 20190516
  6. HYDROXYZINE [Concomitant]
     Active Substance: HYDROXYZINE HYDROCHLORIDE
  7. CLOBETASOL PROPIONATE. [Concomitant]
     Active Substance: CLOBETASOL PROPIONATE
  8. PREDNISONE. [Concomitant]
     Active Substance: PREDNISONE
  9. PRILOSEC [Concomitant]
     Active Substance: OMEPRAZOLE MAGNESIUM

REACTIONS (3)
  - Rash [Recovered/Resolved]
  - Skin discolouration [Recovered/Resolved]
  - Injection site rash [Unknown]

NARRATIVE: CASE EVENT DATE: 20190526
